FAERS Safety Report 8226580-6 (Version None)
Quarter: 2012Q1

REPORT INFORMATION
  Report Type: 
  Country: None (occurrence: None)
  Receive Date: 20120322
  Receipt Date: 20120314
  Transmission Date: 20120608
  Serious: No
  Sender: FDA-Public Use
  Company Number: US-BIOGENIDEC-2012BI009202

PATIENT
  Age: 42 Year
  Sex: Female

DRUGS (1)
  1. TYSABRI [Suspect]
     Indication: MULTIPLE SCLEROSIS
     Route: 042
     Dates: start: 20120305

REACTIONS (7)
  - ABDOMINAL PAIN UPPER [None]
  - HEADACHE [None]
  - NASOPHARYNGITIS [None]
  - MALAISE [None]
  - SINUS CONGESTION [None]
  - FATIGUE [None]
  - OROPHARYNGEAL PAIN [None]
